FAERS Safety Report 7523239-5 (Version None)
Quarter: 2011Q2

REPORT INFORMATION
  Report Type: 
  Country: None (occurrence: None)
  Receive Date: 20110603
  Receipt Date: 20050224
  Transmission Date: 20111010
  Serious: Yes (Death, Other)
  Sender: FDA-Public Use
  Company Number: PHHO2005IN01893

PATIENT
  Sex: Female

DRUGS (1)
  1. GLEEVEC [Suspect]
     Indication: CHRONIC MYELOID LEUKAEMIA
     Dosage: 300 MG, QD
     Dates: start: 20040309

REACTIONS (5)
  - THROMBOCYTOPENIA [None]
  - ANAEMIA [None]
  - DEATH [None]
  - MYELOFIBROSIS [None]
  - NEUTROPENIA [None]
